FAERS Safety Report 23116860 (Version 1)
Quarter: 2023Q4

REPORT INFORMATION
  Report Type: Spontaneous
  Country: AM (occurrence: AM)
  Receive Date: 20231027
  Receipt Date: 20231027
  Transmission Date: 20240110
  Serious: Yes (Other)
  Sender: FDA-Public Use
  Company Number: AM-SUN PHARMACEUTICAL INDUSTRIES LTD-2023RR-414459

PATIENT
  Age: 58 Year
  Sex: Female

DRUGS (2)
  1. CEFTRIAXONE [Suspect]
     Active Substance: CEFTRIAXONE\CEFTRIAXONE SODIUM
     Indication: COVID-19
     Dosage: 1 GRAM, DAILY
     Route: 040
  2. ACETAMINOPHEN [Suspect]
     Active Substance: ACETAMINOPHEN
     Indication: COVID-19
     Dosage: 500 MILLIGRAM, UNK
     Route: 048

REACTIONS (2)
  - Off label use [Unknown]
  - Rash maculo-papular [Recovered/Resolved]
